FAERS Safety Report 17464326 (Version 1)
Quarter: 2020Q1

REPORT INFORMATION
  Report Type: Spontaneous
  Country: GB (occurrence: GB)
  Receive Date: 20200226
  Receipt Date: 20200226
  Transmission Date: 20200409
  Serious: Yes (Hospitalization, Other)
  Sender: FDA-Public Use
  Company Number: GB-PFIZER INC-2020079516

PATIENT
  Age: 73 Year
  Sex: Male

DRUGS (2)
  1. DOCETAXEL. [Suspect]
     Active Substance: DOCETAXEL
     Indication: PROSTATE CANCER
     Dosage: 148 MG, EVERY 3 WEEKS, (Q3W)
     Route: 042
     Dates: start: 20190405, end: 20190405
  2. DOCETAXEL. [Suspect]
     Active Substance: DOCETAXEL
     Dosage: 148 MG, EVERY 3 WEEKS, (Q3W)
     Route: 042
     Dates: start: 20190425, end: 20190425

REACTIONS (2)
  - Neutropenic sepsis [Recovering/Resolving]
  - Pneumonitis [Recovering/Resolving]

NARRATIVE: CASE EVENT DATE: 20190501
